FAERS Safety Report 11632883 (Version 1)
Quarter: 2015Q4

REPORT INFORMATION
  Report Type: Spontaneous
  Country: US (occurrence: None)
  Receive Date: 20151014
  Receipt Date: 20151014
  Transmission Date: 20160304
  Serious: Yes (Life-Threatening, Disabling)
  Sender: FDA-Public Use
  Company Number: None

PATIENT
  Age: 67 Year
  Sex: Female
  Weight: 87.09 kg

DRUGS (2)
  1. METROTRIDAZOLE [Concomitant]
  2. CLINDAMYCIN [Suspect]
     Active Substance: CLINDAMYCIN\CLINDAMYCIN PHOSPHATE
     Indication: CELLULITIS
     Dosage: 300MG X 3 DAILY   3XDAILY /30 PILLS
     Route: 048
     Dates: start: 20150823

REACTIONS (9)
  - Malaise [None]
  - Economic problem [None]
  - Anxiety [None]
  - Decreased appetite [None]
  - General physical health deterioration [None]
  - Impaired work ability [None]
  - Clostridium difficile infection [None]
  - Product quality issue [None]
  - Weight decreased [None]
